FAERS Safety Report 12799896 (Version 2)
Quarter: 2016Q4

REPORT INFORMATION
  Report Type: Spontaneous
  Country: GB (occurrence: GB)
  Receive Date: 20160930
  Receipt Date: 20161018
  Transmission Date: 20170207
  Serious: Yes (Other)
  Sender: FDA-Public Use
  Company Number: GB-009507513-1606GBR007775

PATIENT
  Age: 20 Year
  Sex: Female

DRUGS (4)
  1. NEXPLANON [Suspect]
     Active Substance: ETONOGESTREL
     Dosage: 1 DF, UNK
     Route: 058
     Dates: start: 20131209, end: 20150911
  2. JAPANESE ENCEPHALITIS VIRUS VACCINE [Concomitant]
     Indication: PROPHYLAXIS
     Dosage: 0.5 ML, UNK
     Dates: start: 20160613
  3. CLOTRIMAZOLE. [Concomitant]
     Active Substance: CLOTRIMAZOLE
     Dosage: 20 G, BID
     Dates: start: 20160608
  4. NEXPLANON [Suspect]
     Active Substance: ETONOGESTREL
     Indication: CONTRACEPTION
     Dosage: 1 DF, UNK
     Route: 058
     Dates: start: 20150911, end: 20160830

REACTIONS (9)
  - Abdominal discomfort [Unknown]
  - Metrorrhagia [Recovered/Resolved]
  - Pregnancy with implant contraceptive [Recovered/Resolved]
  - Device breakage [Not Recovered/Not Resolved]
  - Device kink [Recovered/Resolved]
  - Unintended pregnancy [Recovered/Resolved]
  - Amenorrhoea [Recovered/Resolved]
  - Abortion spontaneous [Unknown]
  - Menorrhagia [Not Recovered/Not Resolved]

NARRATIVE: CASE EVENT DATE: 2013
